FAERS Safety Report 11745023 (Version 8)
Quarter: 2018Q1

REPORT INFORMATION
  Report Type: Spontaneous
  Country: US (occurrence: US)
  Receive Date: 20151117
  Receipt Date: 20180105
  Transmission Date: 20180508
  Serious: Yes (Other)
  Sender: FDA-Public Use
  Company Number: US-009507513-1511USA007892

PATIENT
  Age: 8 Year
  Sex: Male

DRUGS (8)
  1. SALMETEROL [Concomitant]
     Active Substance: SALMETEROL
     Indication: ASTHMA
     Dosage: 21 MICROGRAM, BID, 2 PUFFS
     Route: 055
  2. NASONEX [Suspect]
     Active Substance: MOMETASONE FUROATE
     Indication: RHINITIS ALLERGIC
     Dosage: 50 MICROGRAM, QD, ONE SPRAY EACH NOSTRIL DAILY
     Route: 045
  3. OMALIZUMAB. [Concomitant]
     Active Substance: OMALIZUMAB
     Dosage: 300 MG, Q4WK
  4. NASONEX [Suspect]
     Active Substance: MOMETASONE FUROATE
     Indication: ASTHMA
     Dosage: 50 ?G, QD
     Route: 045
  5. SALMETEROL [Concomitant]
     Active Substance: SALMETEROL
     Dosage: 300 MG, UNK
  6. PREDNISOLONE. [Suspect]
     Active Substance: PREDNISOLONE
     Dosage: UP TO 3 TIMES/YEAR
  7. FLUTICASONE PROPIONATE. [Suspect]
     Active Substance: FLUTICASONE PROPIONATE
     Indication: ASTHMA
     Dosage: 115 MICROGRAM, BID, 2 PUFFS
     Route: 045
  8. SALMETEROL [Concomitant]
     Active Substance: SALMETEROL
     Dosage: 21 ?G, BID
     Route: 048

REACTIONS (2)
  - Growth retardation [Unknown]
  - Adrenal suppression [Recovered/Resolved]
